FAERS Safety Report 10019409 (Version 3)
Quarter: 2014Q2

REPORT INFORMATION
  Report Type: Spontaneous
  Country: FR (occurrence: FR)
  Receive Date: 20140318
  Receipt Date: 20140613
  Transmission Date: 20141212
  Serious: Yes (Other)
  Sender: FDA-Public Use
  Company Number: FR-BAXTER-2014BAX012688

PATIENT
  Age: 49 Year
  Sex: Male

DRUGS (34)
  1. ENDOXAN 1000 MG, POUDRE POUR SOLUTION INJECTABLE [Suspect]
     Indication: PLASMA CELL MYELOMA RECURRENT
     Dosage: DAYS 1, 8, 15, 22
     Route: 042
     Dates: start: 20130610
  2. ENDOXAN 1000 MG, POUDRE POUR SOLUTION INJECTABLE [Suspect]
     Dosage: DAYS 1, 8, 15, 22
     Route: 042
     Dates: start: 20130708
  3. ENDOXAN 1000 MG, POUDRE POUR SOLUTION INJECTABLE [Suspect]
     Dosage: DAYS 1, 8, 15, 22
     Route: 042
     Dates: start: 20130805
  4. ENDOXAN 1000 MG, POUDRE POUR SOLUTION INJECTABLE [Suspect]
     Dosage: DAYS 1, 8, 15, 22
     Route: 042
     Dates: start: 20130902
  5. ENDOXAN 1000 MG, POUDRE POUR SOLUTION INJECTABLE [Suspect]
     Dosage: DAYS 1, 8, 15, 22
     Route: 042
     Dates: start: 20130925
  6. ENDOXAN 1000 MG, POUDRE POUR SOLUTION INJECTABLE [Suspect]
     Dosage: DAYS 1, 8, 15, 22
     Route: 042
     Dates: start: 20131028, end: 20131118
  7. REVLIMID [Suspect]
     Indication: PLASMA CELL MYELOMA
     Route: 048
     Dates: start: 201108, end: 201112
  8. REVLIMID [Suspect]
     Route: 048
     Dates: start: 20131204, end: 20140211
  9. VELCADE [Suspect]
     Indication: PLASMA CELL MYELOMA
     Route: 058
     Dates: start: 2008, end: 2008
  10. VELCADE [Suspect]
     Route: 058
     Dates: start: 20110801
  11. VELCADE [Suspect]
     Dosage: DAYS 1, 4, 8, 11
     Route: 058
     Dates: start: 20130610
  12. VELCADE [Suspect]
     Dosage: DAYS 1, 4, 8, 11
     Route: 058
     Dates: start: 20130708
  13. VELCADE [Suspect]
     Dosage: DAYS 1, 4, 8, 11
     Route: 058
     Dates: start: 20130805
  14. VELCADE [Suspect]
     Dosage: DAYS 1, 4, 8, 11
     Route: 058
     Dates: start: 20130902
  15. VELCADE [Suspect]
     Dosage: DAYS 1, 4, 8, 11
     Route: 058
     Dates: start: 20130925
  16. VELCADE [Suspect]
     Dosage: DAYS 1, 4, 8, 11
     Route: 058
     Dates: start: 20131028, end: 20131028
  17. DEXAMETHASONE [Suspect]
     Indication: PLASMA CELL MYELOMA
     Route: 042
     Dates: start: 2008, end: 2008
  18. DEXAMETHASONE [Suspect]
     Indication: DISEASE RECURRENCE
     Route: 042
     Dates: start: 20110801
  19. DEXAMETHASONE [Suspect]
     Route: 042
     Dates: start: 20130509
  20. DEXAMETHASONE [Suspect]
     Dosage: DAYS 1, 2, 4, 5, 8, 9, 11, 12
     Route: 042
     Dates: start: 20130610
  21. DEXAMETHASONE [Suspect]
     Dosage: DAYS 1, 2, 4, 5, 8, 9, 11, 12
     Route: 042
     Dates: start: 20130708
  22. DEXAMETHASONE [Suspect]
     Dosage: DAYS 1, 2, 4, 5, 8, 9, 11, 12
     Route: 042
     Dates: start: 20130805
  23. DEXAMETHASONE [Suspect]
     Dosage: DAYS 1, 2, 4, 5, 8, 9, 11, 12
     Route: 042
     Dates: start: 20130902
  24. DEXAMETHASONE [Suspect]
     Dosage: DAYS 1, 2, 4, 5, 8, 9, 11, 12
     Route: 042
     Dates: start: 20130925
  25. DEXAMETHASONE [Suspect]
     Dosage: DAYS 1, 2, 4, 5, 8, 9, 11, 12
     Route: 042
     Dates: start: 20131028, end: 20131108
  26. ALKERAN [Suspect]
     Indication: BONE MARROW TRANSPLANT
     Route: 042
     Dates: start: 20080901, end: 20080903
  27. ALKERAN [Suspect]
     Route: 042
     Dates: start: 20120201, end: 20120203
  28. OSTEPAM [Concomitant]
     Indication: PLASMA CELL MYELOMA
     Route: 042
     Dates: start: 20130610
  29. OSTEPAM [Concomitant]
     Route: 042
     Dates: start: 20130708
  30. OSTEPAM [Concomitant]
     Route: 042
     Dates: start: 20130805
  31. OSTEPAM [Concomitant]
     Route: 042
     Dates: start: 20130902
  32. OSTEPAM [Concomitant]
     Route: 042
     Dates: start: 20130925
  33. OSTEPAM [Concomitant]
     Route: 042
     Dates: start: 20131028, end: 20131028
  34. SKENAN [Concomitant]
     Indication: BONE PAIN
     Route: 048

REACTIONS (2)
  - Rectal adenocarcinoma [Not Recovered/Not Resolved]
  - Faecal volume decreased [Unknown]
